FAERS Safety Report 12853689 (Version 2)
Quarter: 2017Q1

REPORT INFORMATION
  Report Type: Report from Study
  Country: FR (occurrence: FR)
  Receive Date: 20161017
  Receipt Date: 20170113
  Transmission Date: 20170428
  Serious: Yes (Hospitalization)
  Sender: FDA-Public Use
  Company Number: FR-ROCHE-1034709

PATIENT
  Age: 59 Year
  Sex: Male
  Weight: 84 kg

DRUGS (4)
  1. VISMODEGIB [Suspect]
     Active Substance: VISMODEGIB
     Dosage: COURSE 5
     Route: 048
     Dates: start: 20120207, end: 20120214
  2. VISMODEGIB [Suspect]
     Active Substance: VISMODEGIB
     Dosage: COURSE 2: TOTAL DOSE:4200 MG
     Route: 048
     Dates: start: 20111115
  3. VISMODEGIB [Suspect]
     Active Substance: VISMODEGIB
     Indication: CHONDROSARCOMA
     Dosage: COURSE 1:TOTAL DOSE:4200 MG
     Route: 048
     Dates: start: 20111018
  4. VISMODEGIB [Suspect]
     Active Substance: VISMODEGIB
     Dosage: COURSE 4: TOTAL DOSE:4200 MG
     Route: 048
     Dates: start: 20120110

REACTIONS (1)
  - Embolism [Unknown]

NARRATIVE: CASE EVENT DATE: 20120229
